FAERS Safety Report 14772933 (Version 1)
Quarter: 2018Q2

REPORT INFORMATION
  Report Type: Spontaneous
  Country: DE (occurrence: DE)
  Receive Date: 20180418
  Receipt Date: 20180418
  Transmission Date: 20180711
  Serious: Yes (Other)
  Sender: FDA-Public Use
  Company Number: DE-ROCHE-2107003

PATIENT
  Age: 48 Year
  Sex: Female

DRUGS (1)
  1. OCREVUS [Suspect]
     Active Substance: OCRELIZUMAB
     Indication: PRIMARY PROGRESSIVE MULTIPLE SCLEROSIS
     Dosage: SHE RECEIVED FIRST HALF YEARLY DOSE ON 11/JAN/2018
     Route: 042
     Dates: start: 201706

REACTIONS (4)
  - Gait disturbance [Unknown]
  - Angle closure glaucoma [Recovered/Resolved]
  - Optic neuritis [Unknown]
  - Primary progressive multiple sclerosis [Not Recovered/Not Resolved]
